FAERS Safety Report 15230832 (Version 1)
Quarter: 2018Q3

REPORT INFORMATION
  Report Type: Spontaneous
  Country: US (occurrence: US)
  Receive Date: 20180802
  Receipt Date: 20180802
  Transmission Date: 20181010
  Serious: Yes (Other)
  Sender: FDA-Public Use
  Company Number: US-ROCHE-2157910

PATIENT
  Sex: Female

DRUGS (11)
  1. TYKERB [Concomitant]
     Active Substance: LAPATINIB DITOSYLATE
  2. GEMZAR [Concomitant]
     Active Substance: GEMCITABINE HYDROCHLORIDE
  3. TAXOTERE [Concomitant]
     Active Substance: DOCETAXEL
  4. HERCEPTIN [Suspect]
     Active Substance: TRASTUZUMAB
     Indication: BREAST CANCER
     Route: 065
     Dates: start: 2002
  5. KADCYLA [Suspect]
     Active Substance: ADO-TRASTUZUMAB EMTANSINE
     Indication: PRODUCT USED FOR UNKNOWN INDICATION
     Dosage: 3 CYCLES
     Route: 065
     Dates: start: 201802
  6. XELODA [Suspect]
     Active Substance: CAPECITABINE
     Indication: PRODUCT USED FOR UNKNOWN INDICATION
     Route: 065
  7. ZOMETA [Concomitant]
     Active Substance: ZOLEDRONIC ACID
  8. CARBOPLATIN. [Concomitant]
     Active Substance: CARBOPLATIN
  9. AVASTIN [Suspect]
     Active Substance: BEVACIZUMAB
     Indication: PRODUCT USED FOR UNKNOWN INDICATION
     Route: 065
  10. PERJETA [Suspect]
     Active Substance: PERTUZUMAB
     Indication: PRODUCT USED FOR UNKNOWN INDICATION
     Route: 065
     Dates: start: 20121220
  11. XGEVA [Concomitant]
     Active Substance: DENOSUMAB

REACTIONS (9)
  - Infusion related reaction [Unknown]
  - Mastectomy [Unknown]
  - Rash [Unknown]
  - Bone disorder [Unknown]
  - Ill-defined disorder [Unknown]
  - Colitis microscopic [Unknown]
  - Neoplasm [Unknown]
  - Sciatica [Unknown]
  - Hypersensitivity [Unknown]

NARRATIVE: CASE EVENT DATE: 201712
